FAERS Safety Report 9648778 (Version 2)
Quarter: 2013Q4

REPORT INFORMATION
  Report Type: Spontaneous
  Country: US (occurrence: US)
  Receive Date: 20131028
  Receipt Date: 20131121
  Transmission Date: 20140711
  Serious: Yes (Other)
  Sender: FDA-Public Use
  Company Number: US-TEVA-440675USA

PATIENT
  Age: 16 Year
  Sex: Female
  Weight: 58.57 kg

DRUGS (2)
  1. PARAGARD 380A [Suspect]
     Indication: CONTRACEPTION
     Route: 015
     Dates: start: 20110928, end: 20121003
  2. MULTIVITAMIN [Concomitant]

REACTIONS (4)
  - Device dislocation [Recovered/Resolved]
  - Oligomenorrhoea [Recovered/Resolved]
  - Menstruation irregular [Recovered/Resolved]
  - Weight decreased [Unknown]
